FAERS Safety Report 12207316 (Version 2)
Quarter: 2016Q1

REPORT INFORMATION
  Report Type: Spontaneous
  Country: GB (occurrence: GB)
  Receive Date: 20160324
  Receipt Date: 20160325
  Transmission Date: 20160526
  Serious: Yes (Death, Hospitalization)
  Sender: FDA-Public Use
  Company Number: GB-JNJFOC-20160320464

PATIENT
  Sex: Male

DRUGS (1)
  1. INVOKANA [Suspect]
     Active Substance: CANAGLIFLOZIN
     Indication: TYPE 2 DIABETES MELLITUS
     Route: 048
     Dates: start: 201412

REACTIONS (6)
  - Sepsis [Fatal]
  - Diabetic ketoacidosis [Fatal]
  - Metabolic acidosis [Fatal]
  - Chronic obstructive pulmonary disease [Unknown]
  - Lower respiratory tract infection [Fatal]
  - Adverse event [Fatal]
